FAERS Safety Report 8120712-6 (Version None)
Quarter: 2012Q1

REPORT INFORMATION
  Report Type: 
  Country: None (occurrence: None)
  Receive Date: 20120207
  Receipt Date: 20120130
  Transmission Date: 20120608
  Serious: Yes (Other)
  Sender: FDA-Public Use
  Company Number: US-ASTRAZENECA-2010SE09432

PATIENT
  Age: 67 Year
  Sex: Female
  Weight: 54.4 kg

DRUGS (5)
  1. RHINOCORT [Suspect]
     Route: 045
  2. ALBUTEROL [Concomitant]
  3. ZYRTEC [Concomitant]
  4. PULMICORT [Suspect]
     Route: 055
  5. PRILOSEC [Suspect]
     Route: 048

REACTIONS (7)
  - SINUSITIS [None]
  - LUNG DISORDER [None]
  - COUGH [None]
  - GASTROOESOPHAGEAL REFLUX DISEASE [None]
  - CHRONIC OBSTRUCTIVE PULMONARY DISEASE [None]
  - LUNG NEOPLASM MALIGNANT [None]
  - INCORRECT DOSE ADMINISTERED [None]
